FAERS Safety Report 9375818 (Version 1)
Quarter: 2013Q2

REPORT INFORMATION
  Report Type: Spontaneous
  Country: US (occurrence: US)
  Receive Date: 20130628
  Receipt Date: 20130628
  Transmission Date: 20140414
  Serious: Yes (Other)
  Sender: FDA-Public Use
  Company Number: US-PFIZER INC-2013193530

PATIENT
  Age: 70 Year
  Sex: Female

DRUGS (3)
  1. LYRICA [Suspect]
     Indication: FIBROMYALGIA
     Dosage: 300MG IN A DAY BY TAKING 200MG IN THE MORNING AND 100MG AT NIGHT
     Route: 048
  2. LYRICA [Suspect]
     Dosage: 50 MG, UNK
     Route: 048
  3. NORCO [Concomitant]
     Dosage: UNK

REACTIONS (1)
  - Somnolence [Unknown]
